FAERS Safety Report 10489611 (Version 4)
Quarter: 2016Q2

REPORT INFORMATION
  Report Type: Spontaneous
  Country: US (occurrence: US)
  Receive Date: 20140815
  Receipt Date: 20160503
  Transmission Date: 20160815
  Serious: Yes (Other)
  Sender: FDA-Public Use
  Company Number: ADR-2013-02212

PATIENT
  Age: 42 Year
  Sex: Female

DRUGS (25)
  1. DILAUDID [Suspect]
     Active Substance: HYDROMORPHONE HYDROCHLORIDE
     Dosage: 2.9120MG/DAY
     Route: 037
  2. DILAUDID [Suspect]
     Active Substance: HYDROMORPHONE HYDROCHLORIDE
     Dosage: 2.912MG/DAY
     Route: 037
  3. CLONIDINE. [Suspect]
     Active Substance: CLONIDINE
     Dosage: 0.07761MG/DAY
     Route: 037
  4. CYMBALTA [Suspect]
     Active Substance: DULOXETINE HYDROCHLORIDE
  5. FENTANYL. [Suspect]
     Active Substance: FENTANYL
     Dosage: 8MG/DAY
     Route: 037
  6. FENTANYL. [Suspect]
     Active Substance: FENTANYL
     Dosage: 9.7MG/DAY
     Route: 037
  7. FENTANYL. [Suspect]
     Active Substance: FENTANYL
     Dosage: 8.199MG/DAY
     Route: 037
  8. NORCO [Suspect]
     Active Substance: ACETAMINOPHEN\HYDROCODONE BITARTRATE
  9. UNSPECIFIED NAUSEA MEDICINE [Suspect]
     Active Substance: UNSPECIFIED INGREDIENT
  10. IMITREX [Suspect]
     Active Substance: SUMATRIPTAN SUCCINATE
  11. CLONIDINE. [Suspect]
     Active Substance: CLONIDINE
     Dosage: 0.06559
     Route: 037
  12. DILAUDID [Suspect]
     Active Substance: HYDROMORPHONE HYDROCHLORIDE
     Dosage: 2.9845MG/DAY
     Route: 037
  13. CLONIDINE. [Suspect]
     Active Substance: CLONIDINE
     Dosage: 0.064MG/DAY
     Route: 037
  14. BACLOFEN. [Suspect]
     Active Substance: BACLOFEN
     Dosage: 0.7761MG/DAY
     Route: 037
  15. HYDROMORPHONE [Suspect]
     Active Substance: HYDROMORPHONE
     Dosage: 3.5312MG/DAY
     Route: 037
  16. DIAZEPAM. [Suspect]
     Active Substance: DIAZEPAM
  17. BACLOFEN. [Suspect]
     Active Substance: BACLOFEN
     Dosage: 0.6559MG/DAY
     Route: 037
  18. FENTANYL CITRATE. [Suspect]
     Active Substance: FENTANYL CITRATE
     Dosage: 8MG/DAY
     Route: 037
  19. CLONIDINE. [Suspect]
     Active Substance: CLONIDINE
     Dosage: 0.06400MG/DAY
     Route: 037
  20. ESTRADIOL. [Suspect]
     Active Substance: ESTRADIOL
  21. BACLOFEN. [Suspect]
     Active Substance: BACLOFEN
     Dosage: 0.6400MG/DAY
     Route: 037
  22. UNSPECIFIED ESTROGEN MEDICINE [Suspect]
     Active Substance: UNSPECIFIED INGREDIENT
  23. ZOFRAN [Suspect]
     Active Substance: ONDANSETRON HYDROCHLORIDE
  24. TOPAMAX [Suspect]
     Active Substance: TOPIRAMATE
  25. BACLOFEN. [Suspect]
     Active Substance: BACLOFEN
     Dosage: 0.64MG/DAY
     Route: 037

REACTIONS (13)
  - Feeling of body temperature change [Recovered/Resolved]
  - Memory impairment [Recovered/Resolved]
  - Nausea [Recovered/Resolved]
  - Drug withdrawal syndrome [Recovered/Resolved]
  - Swelling [Recovered/Resolved]
  - Oedema [Recovered/Resolved]
  - Abdominal discomfort [Recovered/Resolved]
  - Medical device discomfort [Recovered/Resolved]
  - Drug administration error [Recovered/Resolved]
  - Granuloma [Recovered/Resolved]
  - Seizure [Recovered/Resolved]
  - Pain [Recovered/Resolved]
  - Diarrhoea [Recovered/Resolved]

NARRATIVE: CASE EVENT DATE: 201311
